FAERS Safety Report 5223437-X (Version None)
Quarter: 2007Q1

REPORT INFORMATION
  Report Type: 
  Country: None (occurrence: None)
  Receive Date: 20070125
  Receipt Date: 20070123
  Transmission Date: 20070707
  Serious: Yes (Hospitalization)
  Sender: FDA-Public Use
  Company Number: 225556

PATIENT
  Age: 64 Year
  Sex: Male
  Weight: 75 kg

DRUGS (5)
  1. AVASTIN [Suspect]
     Indication: COLORECTAL CANCER
     Dosage: 562.5 MG, Q3W, INTRAVENOUS
     Route: 042
     Dates: start: 20060328
  2. CAPECITABINE (CAPECITABINE) [Suspect]
     Indication: COLORECTAL CANCER METASTATIC
     Dosage: 2000 MG/M2, BID, ORAL
     Route: 048
     Dates: start: 20060328, end: 20060403
  3. AVLOCARDYL (PROPRANOLOL HYDROCHLORIDE) [Concomitant]
  4. IRINOTECAN HCL [Suspect]
     Indication: COLORECTAL CANCER METASTATIC
     Dosage: 30 MG, INTRAVENOUS
     Route: 042
     Dates: start: 20060328
  5. ATORVASTATIN CALCIUM [Concomitant]

REACTIONS (1)
  - APLASIA [None]
